FAERS Safety Report 4378755-4 (Version None)
Quarter: 2004Q2

REPORT INFORMATION
  Report Type: 
  Country: None (occurrence: None)
  Receive Date: 20040609
  Receipt Date: 20040520
  Transmission Date: 20050107
  Serious: Yes (Hospitalization)
  Sender: FDA-Public Use
  Company Number: USA040568134

PATIENT
  Sex: Female

DRUGS (1)
  1. FORTEO [Suspect]
     Dosage: 0.8 ML/1
     Dates: start: 20040520, end: 20040520

REACTIONS (3)
  - MEDICATION ERROR [None]
  - OVERDOSE [None]
  - RESPIRATORY TRACT INFECTION [None]
